FAERS Safety Report 25035778 (Version 1)
Quarter: 2025Q1

REPORT INFORMATION
  Report Type: Report from Study
  Country: IN (occurrence: IN)
  Receive Date: 20250304
  Receipt Date: 20250304
  Transmission Date: 20250409
  Serious: Yes (Other)
  Sender: ROCHE
  Company Number: IN-ROCHE-10000215234

PATIENT
  Age: 63 Year
  Sex: Male

DRUGS (1)
  1. TECENTRIQ [Suspect]
     Active Substance: ATEZOLIZUMAB
     Indication: Hepatocellular carcinoma
     Route: 042
     Dates: start: 20241128

REACTIONS (8)
  - Hepatic lesion [Unknown]
  - Hepatocellular carcinoma [Unknown]
  - Collateral circulation [Unknown]
  - Fat tissue increased [Unknown]
  - Granular cell tumour [Unknown]
  - Ascites [Unknown]
  - Liver disorder [Unknown]
  - Tumour thrombosis [Unknown]
